FAERS Safety Report 24970879 (Version 1)
Quarter: 2025Q1

REPORT INFORMATION
  Report Type: Spontaneous
  Country: US (occurrence: US)
  Receive Date: 20250214
  Receipt Date: 20250214
  Transmission Date: 20250409
  Serious: No
  Sender: ALKERMES
  Company Number: US-ALKERMES INC.-ALK-2025-000037

PATIENT
  Age: 68 Year
  Sex: Female

DRUGS (3)
  1. VIVITROL [Suspect]
     Active Substance: NALTREXONE
     Indication: Alcohol use disorder
     Route: 030
     Dates: start: 20241113, end: 20241113
  2. VIVITROL [Suspect]
     Active Substance: NALTREXONE
     Route: 030
     Dates: start: 20241211, end: 20241211
  3. NALTREXONE [Concomitant]
     Active Substance: NALTREXONE
     Indication: Alcoholism
     Route: 065
     Dates: start: 20241211

REACTIONS (3)
  - Adverse drug reaction [Recovered/Resolved]
  - Headache [Recovered/Resolved]
  - Insomnia [Recovered/Resolved]

NARRATIVE: CASE EVENT DATE: 20241113
